FAERS Safety Report 21798939 (Version 2)
Quarter: 2023Q4

REPORT INFORMATION
  Report Type: Spontaneous
  Country: US (occurrence: US)
  Receive Date: 20221230
  Receipt Date: 20231120
  Transmission Date: 20240110
  Serious: Yes (Other)
  Sender: FDA-Public Use
  Company Number: US-BRISTOL-MYERS SQUIBB COMPANY-2022-160632

PATIENT
  Age: 68 Year
  Sex: Male

DRUGS (1)
  1. POMALYST [Suspect]
     Active Substance: POMALIDOMIDE
     Indication: Product used for unknown indication
     Dosage: QD FOR 21 DAYS
     Route: 048

REACTIONS (7)
  - Rash [Unknown]
  - Urinary tract infection [Unknown]
  - Neuropathy peripheral [Unknown]
  - Muscle spasms [Unknown]
  - Constipation [Unknown]
  - Pruritus [Unknown]
  - Rhinorrhoea [Unknown]
